FAERS Safety Report 8959495 (Version 13)
Quarter: 2016Q1

REPORT INFORMATION
  Report Type: Report from Study
  Country: US (occurrence: US)
  Receive Date: 20121212
  Receipt Date: 20160202
  Transmission Date: 20160526
  Serious: Yes (Death, Life-Threatening, Hospitalization)
  Sender: FDA-Public Use
  Company Number: US-ROCHE-1052000

PATIENT
  Age: 67 Year
  Sex: Female
  Weight: 63.8 kg

DRUGS (47)
  1. CELEBREX [Concomitant]
     Active Substance: CELECOXIB
     Indication: RHEUMATOID ARTHRITIS
     Route: 048
     Dates: start: 200902
  2. ALKA SELTZER PLUS COUGH AND COLD (ASPIRIN, CHLORPHENIRAMINE MALEATE, D [Concomitant]
     Dosage: 2 TABLET
     Route: 048
     Dates: start: 20110503
  3. ALKA SELTZER PLUS COUGH AND COLD (ASPIRIN, CHLORPHENIRAMINE MALEATE, D [Concomitant]
     Route: 048
     Dates: start: 20101126
  4. CAPSAICIN. [Concomitant]
     Active Substance: CAPSAICIN
     Route: 061
     Dates: start: 20101020
  5. ZYRTEC [Concomitant]
     Active Substance: CETIRIZINE HYDROCHLORIDE
     Route: 048
     Dates: start: 2002
  6. ACETAMINOPHEN. [Concomitant]
     Active Substance: ACETAMINOPHEN
     Route: 048
     Dates: start: 20110425
  7. PHENYLEPHRINE HCL [Concomitant]
     Active Substance: PHENYLEPHRINE HYDROCHLORIDE
     Route: 048
     Dates: start: 20110425
  8. CIPRO [Concomitant]
     Active Substance: CIPROFLOXACIN HYDROCHLORIDE
     Route: 048
     Dates: start: 20110715, end: 20110722
  9. TOCILIZUMAB [Suspect]
     Active Substance: TOCILIZUMAB
     Indication: RHEUMATOID ARTHRITIS
     Dosage: MOST RECENT DOSE OF 162 MG ADMINISTERED ON: 16/MAR/2012. MOST RECENT DOSE OF 162 MG ADMINISTERED ON
     Route: 058
     Dates: start: 20110506
  10. ZANTAC [Concomitant]
     Active Substance: RANITIDINE HYDROCHLORIDE
     Route: 048
     Dates: start: 20010308
  11. TYLENOL [Concomitant]
     Active Substance: ACETAMINOPHEN
     Route: 048
     Dates: start: 1963
  12. PLACEBO [Suspect]
     Active Substance: UNSPECIFIED INGREDIENT
     Indication: RHEUMATOID ARTHRITIS
     Dosage: MOST RECENT DOSE: 10/DEC/2010, 04/APR/2011
     Route: 042
     Dates: start: 20101112
  13. THERACRAN [Concomitant]
     Route: 048
     Dates: start: 20111130
  14. FONDAPARINUX [Concomitant]
     Active Substance: FONDAPARINUX
     Route: 058
     Dates: start: 20120322, end: 20120324
  15. MEROPENEM. [Concomitant]
     Active Substance: MEROPENEM
     Route: 042
     Dates: start: 20120417, end: 20120503
  16. ERYTHROMYCIN. [Suspect]
     Active Substance: ERYTHROMYCIN
     Indication: PRODUCT USED FOR UNKNOWN INDICATION
     Route: 048
     Dates: start: 20101220, end: 20101228
  17. METHOTREXATE [Concomitant]
     Active Substance: METHOTREXATE
     Indication: RHEUMATOID ARTHRITIS
     Route: 048
     Dates: start: 20000426
  18. MOXIFLOXACIN. [Concomitant]
     Active Substance: MOXIFLOXACIN
     Route: 042
     Dates: start: 20120404, end: 20120413
  19. METRONIDAZOL [Concomitant]
     Active Substance: METRONIDAZOLE
     Route: 042
     Dates: start: 20120404, end: 20120416
  20. DIGOXIN. [Concomitant]
     Active Substance: DIGOXIN
     Route: 042
     Dates: start: 20120414, end: 20120418
  21. DILTIAZEM HYDROCHLORIDE EXTENDED RELEASE [Concomitant]
     Active Substance: DILTIAZEM HYDROCHLORIDE
     Route: 048
     Dates: start: 20120415, end: 20120422
  22. TOBRAMYCIN. [Concomitant]
     Active Substance: TOBRAMYCIN
     Route: 042
     Dates: start: 20120520, end: 20120614
  23. CAPTOPRIL. [Concomitant]
     Active Substance: CAPTOPRIL
     Route: 048
     Dates: start: 20020310, end: 20120209
  24. DEPO-MEDROL [Concomitant]
     Active Substance: METHYLPREDNISOLONE ACETATE
     Route: 030
     Dates: start: 20120222, end: 20120222
  25. MACROBID (UNITED STATES) [Concomitant]
     Route: 048
     Dates: start: 20111021, end: 20111027
  26. FOLIC ACID. [Concomitant]
     Active Substance: FOLIC ACID
     Route: 048
     Dates: start: 20101031
  27. PREDNISONE. [Concomitant]
     Active Substance: PREDNISONE
     Indication: RHEUMATOID ARTHRITIS
     Route: 048
     Dates: start: 201007
  28. VERSED [Concomitant]
     Active Substance: MIDAZOLAM HYDROCHLORIDE
     Route: 042
     Dates: start: 20120320, end: 20120320
  29. FENTANYL. [Concomitant]
     Active Substance: FENTANYL
     Route: 042
     Dates: start: 20120320, end: 20120320
  30. FLUCONAZOLE. [Concomitant]
     Active Substance: FLUCONAZOLE
     Route: 048
     Dates: start: 20120413, end: 20120426
  31. MACROBID (UNITED STATES) [Concomitant]
     Route: 048
     Dates: start: 20120128
  32. MACROBID (UNITED STATES) [Concomitant]
     Route: 048
     Dates: start: 20111028, end: 20120119
  33. LISINOPRIL. [Concomitant]
     Active Substance: LISINOPRIL
     Route: 048
     Dates: start: 20120209
  34. HYDROCORTISONE. [Concomitant]
     Active Substance: HYDROCORTISONE
     Route: 042
     Dates: start: 20120403, end: 20120408
  35. CIPRO [Concomitant]
     Active Substance: CIPROFLOXACIN HYDROCHLORIDE
     Route: 042
     Dates: start: 20120521, end: 20120607
  36. MACROBID (UNITED STATES) [Concomitant]
     Route: 048
     Dates: start: 20120120
  37. ATENOLOL. [Concomitant]
     Active Substance: ATENOLOL
     Route: 048
     Dates: start: 2009
  38. ALKA SELTZER PLUS COUGH AND COLD (ASPIRIN, CHLORPHENIRAMINE MALEATE, D [Concomitant]
     Route: 048
     Dates: start: 20101112
  39. CHLORPHENIRAMINE MALEATE. [Concomitant]
     Active Substance: CHLORPHENIRAMINE MALEATE
     Route: 048
     Dates: start: 20110425
  40. CEFAZOLIN [Concomitant]
     Active Substance: CEFAZOLIN
     Route: 042
     Dates: start: 20120321, end: 20120324
  41. TOCILIZUMAB [Suspect]
     Active Substance: TOCILIZUMAB
     Indication: RHEUMATOID ARTHRITIS
     Dosage: MOST RECENT DOSE: 17/DEC/2010, 04/APR/2011
     Route: 058
     Dates: start: 20101112, end: 20110422
  42. IBUPROFEN. [Concomitant]
     Active Substance: IBUPROFEN
     Indication: RHEUMATOID ARTHRITIS
     Route: 048
     Dates: start: 20100903
  43. MUCUS RELIEF SINUS [Concomitant]
     Active Substance: GUAIFENESIN\PHENYLEPHRINE HYDROCHLORIDE
     Route: 048
     Dates: start: 20111112
  44. CARDIZEM [Concomitant]
     Active Substance: DILTIAZEM HYDROCHLORIDE
     Route: 042
     Dates: start: 20120414, end: 20120415
  45. ERAXIS [Concomitant]
     Active Substance: ANIDULAFUNGIN
     Route: 042
     Dates: start: 20120505, end: 20120520
  46. AMIKIN [Concomitant]
     Active Substance: AMIKACIN SULFATE
     Route: 042
     Dates: start: 20120513, end: 20120520
  47. VANCOMYCIN [Concomitant]
     Active Substance: VANCOMYCIN
     Route: 042
     Dates: start: 20120613, end: 20120623

REACTIONS (14)
  - Peritonitis [Recovered/Resolved with Sequelae]
  - Drug hypersensitivity [Recovered/Resolved]
  - Pseudomonal sepsis [Unknown]
  - Acute respiratory failure [Unknown]
  - Septic shock [Unknown]
  - Encephalopathy [Unknown]
  - Urinary tract infection [Not Recovered/Not Resolved]
  - Death [Fatal]
  - Diverticular perforation [Recovered/Resolved]
  - Acute kidney injury [Not Recovered/Not Resolved]
  - Urosepsis [Unknown]
  - Atrial fibrillation [Recovered/Resolved]
  - Femur fracture [Recovered/Resolved]
  - Urinary tract infection [Recovered/Resolved]

NARRATIVE: CASE EVENT DATE: 20101221
